FAERS Safety Report 23148623 (Version 1)
Quarter: 2023Q4

REPORT INFORMATION
  Report Type: Spontaneous
  Country: US (occurrence: None)
  Receive Date: 20231103
  Receipt Date: 20231103
  Transmission Date: 20240110
  Serious: Yes (Life-Threatening)
  Sender: FDA-Public Use
  Company Number: None

PATIENT
  Age: 60 Year
  Sex: Male
  Weight: 122 kg

DRUGS (9)
  1. LUMASON [Suspect]
     Active Substance: SULFUR HEXAFLUORIDE
     Indication: Contrast echocardiogram
     Dosage: OTHER FREQUENCY : ONCE;?
     Route: 040
     Dates: start: 20231103, end: 20231103
  2. SODIUM CHLORIDE [Concomitant]
     Active Substance: SODIUM CHLORIDE
     Dates: start: 20231103, end: 20231103
  3. OZEMPIC [Concomitant]
     Active Substance: SEMAGLUTIDE
  4. LIPITOR [Concomitant]
     Active Substance: ATORVASTATIN CALCIUM
  5. XANAX [Concomitant]
     Active Substance: ALPRAZOLAM
  6. PLAVIX [Concomitant]
     Active Substance: CLOPIDOGREL BISULFATE
  7. AMARYL [Concomitant]
     Active Substance: GLIMEPIRIDE
  8. LISINOPRIL [Concomitant]
     Active Substance: LISINOPRIL
  9. LOPRESSOR [Concomitant]
     Active Substance: METOPROLOL TARTRATE

REACTIONS (12)
  - Chest pain [None]
  - Pain [None]
  - Pruritus [None]
  - Nausea [None]
  - Dyspnoea [None]
  - Pallor [None]
  - Hyperhidrosis [None]
  - Hypotension [None]
  - Bradycardia [None]
  - Feeling jittery [None]
  - Tremor [None]
  - Atrial fibrillation [None]

NARRATIVE: CASE EVENT DATE: 20231103
